FAERS Safety Report 7013709-0 (Version None)
Quarter: 2010Q3

REPORT INFORMATION
  Report Type: 
  Country: None (occurrence: None)
  Receive Date: 20100924
  Receipt Date: 20100920
  Transmission Date: 20110219
  Serious: No
  Sender: FDA-Public Use
  Company Number: US-TEVA-249194USA

PATIENT
  Sex: Male

DRUGS (5)
  1. AZILECT [Suspect]
     Indication: PARKINSON'S DISEASE
     Route: 048
     Dates: start: 20100527
  2. AZILECT [Suspect]
     Route: 048
     Dates: start: 20100427
  3. ATENOLOL [Concomitant]
  4. OMEPRAZOLE [Concomitant]
  5. JANUMET [Concomitant]

REACTIONS (1)
  - SLEEP DISORDER [None]
